FAERS Safety Report 4638082-4 (Version None)
Quarter: 2005Q2

REPORT INFORMATION
  Report Type: 
  Country: None (occurrence: None)
  Receive Date: 20050415
  Receipt Date: 20050331
  Transmission Date: 20051028
  Serious: Yes (Hospitalization)
  Sender: FDA-Public Use
  Company Number: 2005BI003244

PATIENT
  Age: 52 Year
  Sex: Female

DRUGS (10)
  1. AVONEX [Suspect]
     Indication: MULTIPLE SCLEROSIS
     Dosage: 30 UG; QW; IM
     Route: 030
  2. ATENOLOL [Concomitant]
  3. DITROPAN [Concomitant]
  4. NORVASC [Concomitant]
  5. DICYCLOMINE [Concomitant]
  6. PROTONIX [Concomitant]
  7. LIPITOR [Concomitant]
  8. FOSAMAX [Concomitant]
  9. ALLEGRA [Concomitant]
  10. BENADRYL ^ACHE^ [Concomitant]

REACTIONS (4)
  - DIPLEGIA [None]
  - NEUROGENIC BLADDER [None]
  - PYREXIA [None]
  - URINARY TRACT INFECTION [None]
